FAERS Safety Report 16180227 (Version 3)
Quarter: 2020Q2

REPORT INFORMATION
  Report Type: Spontaneous
  Country: US (occurrence: US)
  Receive Date: 20190410
  Receipt Date: 20200407
  Transmission Date: 20200713
  Serious: No
  Sender: FDA-Public Use
  Company Number: US-AMNEAL PHARMACEUTICALS-2019AMN00256

PATIENT
  Sex: Female
  Weight: 10.8 kg

DRUGS (3)
  1. VIGABATRIN. [Suspect]
     Active Substance: VIGABATRIN
     Indication: INFANTILE SPASMS
     Dosage: 450 MG, 2X/DAY
     Route: 048
     Dates: start: 201901
  2. VIGABATRIN. [Suspect]
     Active Substance: VIGABATRIN
     Dosage: EXTRA DOSES
     Route: 048
  3. VIGABATRIN. [Suspect]
     Active Substance: VIGABATRIN
     Dosage: 900 UNK
     Route: 048

REACTIONS (3)
  - Product substitution issue [Unknown]
  - Movement disorder [Unknown]
  - Vomiting [Unknown]
